FAERS Safety Report 5677341-3 (Version None)
Quarter: 2008Q1

REPORT INFORMATION
  Report Type: 
  Country: None (occurrence: None)
  Receive Date: 20080318
  Receipt Date: 20080312
  Transmission Date: 20080703
  Serious: Yes (Other)
  Sender: FDA-Public Use
  Company Number: PHNU2008DE01271

PATIENT
  Sex: Female
  Weight: 55 kg

DRUGS (3)
  1. SANDIUMMUN OPTORAL      (CICLOSPORIN) [Suspect]
     Indication: RENAL TRANSPLANT
     Dosage: 250MG/DAY, ORAL
     Route: 048
     Dates: start: 19900101, end: 20070901
  2. CICLORAL HEXAL (NGX) (CICLOSPORIN) UNKNOWN [Suspect]
     Indication: RENAL TRANSPLANT
     Dosage: 250MG/DAY, ORAL
     Route: 048
     Dates: start: 19900101, end: 20070901
  3. PROGRAF [Suspect]
     Indication: RENAL TRANSPLANT
     Dosage: 2MG/DAY, ORAL
     Route: 048
     Dates: start: 20070901, end: 20071001

REACTIONS (1)
  - NEURODERMATITIS [None]
